FAERS Safety Report 4421571-5 (Version None)
Quarter: 2004Q3

REPORT INFORMATION
  Report Type: 
  Country: None (occurrence: None)
  Receive Date: 20040809
  Receipt Date: 20040809
  Transmission Date: 20050211
  Serious: Yes (Disabling)
  Sender: FDA-Public Use
  Company Number: None

PATIENT
  Age: 79 Year
  Sex: Male
  Weight: 70.3075 kg

DRUGS (1)
  1. PROSCAR [Suspect]
     Indication: BENIGN PROSTATIC HYPERPLASIA
     Dosage: 1 DAILY ORAL
     Route: 048
     Dates: start: 20040525, end: 20040729

REACTIONS (2)
  - PHOTOSENSITIVITY REACTION [None]
  - VISION BLURRED [None]
